FAERS Safety Report 7490381-7 (Version None)
Quarter: 2011Q2

REPORT INFORMATION
  Report Type: 
  Country: None (occurrence: None)
  Receive Date: 20110519
  Receipt Date: 20110509
  Transmission Date: 20111010
  Serious: Yes (Death, Hospitalization, Other)
  Sender: FDA-Public Use
  Company Number: US-BAYER-201032545NA

PATIENT
  Age: 45 Year
  Sex: Female
  Weight: 129.25 kg

DRUGS (15)
  1. YASMIN [Suspect]
     Indication: PRODUCT USED FOR UNKNOWN INDICATION
     Route: 048
  2. YAZ [Suspect]
     Indication: PRODUCT USED FOR UNKNOWN INDICATION
     Dosage: UNK
     Route: 048
     Dates: start: 20090602
  3. BUSPIRONE HCL [Concomitant]
  4. NOVOLOG [Concomitant]
  5. DROSPIRENONE AND ETHINYL ESTRADIOL [Suspect]
     Indication: PRODUCT USED FOR UNKNOWN INDICATION
     Route: 048
  6. PROTONIX [Concomitant]
  7. TRIMETHOPRIM + SULFAMETHOXAZOLE [Concomitant]
  8. CYMBALTA [Concomitant]
  9. AVANDIA [Concomitant]
  10. ALPRAZOLAM [Concomitant]
  11. NOVOLIN 70/30 [Concomitant]
  12. ASPIRIN [Concomitant]
  13. METFORMIN HCL [Concomitant]
  14. LOVASTATIN [Concomitant]
  15. LYRICA [Concomitant]

REACTIONS (11)
  - MYOCARDIAL INFARCTION [None]
  - CEREBRAL HAEMORRHAGE [None]
  - GALLBLADDER DISORDER [None]
  - BENIGN HEPATIC NEOPLASM [None]
  - EMBOLISM ARTERIAL [None]
  - HYPERTENSION [None]
  - PULMONARY EMBOLISM [None]
  - THROMBOPHLEBITIS [None]
  - CEREBRAL THROMBOSIS [None]
  - HEPATIC ADENOMA [None]
  - DEEP VEIN THROMBOSIS [None]
